FAERS Safety Report 9866063 (Version 1)
Quarter: 2014Q1

REPORT INFORMATION
  Report Type: Spontaneous
  Country: US (occurrence: US)
  Receive Date: 20140203
  Receipt Date: 20140203
  Transmission Date: 20141002
  Serious: No
  Sender: FDA-Public Use
  Company Number: US-ALLERGAN-1315044US

PATIENT
  Age: 63 Year
  Sex: Female

DRUGS (6)
  1. RESTASIS [Suspect]
     Indication: EYE INFLAMMATION
     Dosage: 2 GTT, BID
     Dates: start: 20130925
  2. THERATEARS [Concomitant]
     Indication: DRY EYE
     Route: 047
  3. GENTEAL GEL TWIN PACK [Concomitant]
     Indication: DRY EYE
     Dosage: UNK UNK, QHS
     Route: 047
  4. STERIOD EYE DROPS NOS [Concomitant]
     Indication: DRY EYE
     Dosage: 2 GTT, PRN
     Route: 047
     Dates: end: 20130924
  5. LOTEMAX [Concomitant]
     Indication: DRY EYE
     Dosage: 2 GTT, TID
     Route: 047
     Dates: start: 20130924
  6. REFRESH TEARS [Concomitant]
     Indication: DRY EYE

REACTIONS (1)
  - Drug ineffective [Unknown]
